FAERS Safety Report 17505336 (Version 4)
Quarter: 2020Q2

REPORT INFORMATION
  Report Type: Report from Study
  Country: US (occurrence: US)
  Receive Date: 20200306
  Receipt Date: 20200511
  Transmission Date: 20200713
  Serious: No
  Sender: FDA-Public Use
  Company Number: NVSC2020US063892

PATIENT
  Sex: Female

DRUGS (2)
  1. GILENYA [Suspect]
     Active Substance: FINGOLIMOD HYDROCHLORIDE
     Indication: MULTIPLE SCLEROSIS
     Dosage: 0.5 MG, QD
     Route: 048
     Dates: start: 20180204
  2. GILENYA [Suspect]
     Active Substance: FINGOLIMOD HYDROCHLORIDE
     Dosage: 0.5 MG, QD
     Route: 048

REACTIONS (7)
  - Neuralgia [Unknown]
  - Acne [Unknown]
  - Intervertebral disc protrusion [Unknown]
  - Hypoaesthesia [Unknown]
  - Mass [Unknown]
  - White blood cell count decreased [Recovering/Resolving]
  - Back pain [Unknown]
